FAERS Safety Report 19664571 (Version 1)
Quarter: 2021Q3

REPORT INFORMATION
  Report Type: Report from Study
  Country: None (occurrence: CA)
  Receive Date: 20210806
  Receipt Date: 20210806
  Transmission Date: 20211014
  Serious: Yes (Hospitalization)
  Sender: FDA-Public Use
  Company Number: CA-ABBVIE-21K-028-4026124-00

PATIENT
  Age: 60 Year
  Sex: Male

DRUGS (1)
  1. RINVOQ [Suspect]
     Active Substance: UPADACITINIB
     Indication: RHEUMATOID ARTHRITIS
     Route: 048
     Dates: start: 20200128, end: 20210719

REACTIONS (4)
  - Incorrect route of product administration [Unknown]
  - Pneumonia aspiration [Unknown]
  - Cardiac arrest [Unknown]
  - Lung disorder [Unknown]

NARRATIVE: CASE EVENT DATE: 20210620
